FAERS Safety Report 5352323-X (Version None)
Quarter: 2007Q2

REPORT INFORMATION
  Report Type: 
  Country: None (occurrence: None)
  Receive Date: 20070607
  Receipt Date: 20070607
  Transmission Date: 20071010
  Serious: Yes (Hospitalization, Other)
  Sender: FDA-Public Use
  Company Number: None

PATIENT
  Age: 26 Year
  Sex: Male
  Weight: 97.5234 kg

DRUGS (6)
  1. NEXIUM [Suspect]
     Indication: CROHN'S DISEASE
     Dosage: 40 MG TWICE A DAY PO
     Route: 048
     Dates: start: 20070101, end: 20070602
  2. NEXIUM [Suspect]
     Indication: HIATUS HERNIA
     Dosage: 40 MG TWICE A DAY PO
     Route: 048
     Dates: start: 20070101, end: 20070602
  3. NEXIUM [Suspect]
     Indication: OESOPHAGITIS
     Dosage: 40 MG TWICE A DAY PO
     Route: 048
     Dates: start: 20070101, end: 20070602
  4. PROTONIX [Suspect]
     Indication: CROHN'S DISEASE
     Dosage: 40MG 1 A DAY PO
     Route: 048
     Dates: start: 20061223, end: 20070101
  5. PROTONIX [Suspect]
     Indication: HIATUS HERNIA
     Dosage: 40MG 1 A DAY PO
     Route: 048
     Dates: start: 20061223, end: 20070101
  6. PROTONIX [Suspect]
     Indication: OESOPHAGITIS
     Dosage: 40MG 1 A DAY PO
     Route: 048
     Dates: start: 20061223, end: 20070101

REACTIONS (20)
  - ABDOMINAL PAIN UPPER [None]
  - AGITATION [None]
  - ARTHRALGIA [None]
  - DIZZINESS [None]
  - DRUG INTOLERANCE [None]
  - EAR PAIN [None]
  - EYE PAIN [None]
  - HALLUCINATION [None]
  - HEADACHE [None]
  - MALAISE [None]
  - MYALGIA [None]
  - NECK PAIN [None]
  - NIGHTMARE [None]
  - OVERDOSE [None]
  - PAIN [None]
  - PAIN IN EXTREMITY [None]
  - PANIC ATTACK [None]
  - PARAESTHESIA [None]
  - RASH [None]
  - TENDON PAIN [None]
